FAERS Safety Report 8557511-7 (Version None)
Quarter: 2012Q3

REPORT INFORMATION
  Report Type: 
  Country: None (occurrence: None)
  Receive Date: 20120725
  Receipt Date: 20120725
  Transmission Date: 20120928
  Serious: No
  Sender: FDA-Public Use
  Company Number: None

PATIENT
  Age: 33 Year
  Sex: Male

DRUGS (2)
  1. QUETIAPINE [Suspect]
  2. QUETIAPINE [Suspect]

REACTIONS (3)
  - MOOD SWINGS [None]
  - ANXIETY [None]
  - PRODUCT SUBSTITUTION ISSUE [None]
